APPROVED DRUG PRODUCT: SUCLEAR
Active Ingredient: MAGNESIUM SULFATE; POLYETHYLENE GLYCOL 3350; POTASSIUM CHLORIDE; POTASSIUM SULFATE; SODIUM BICARBONATE; SODIUM CHLORIDE; SODIUM SULFATE
Strength: 1.6GM/BOT,3.13GM/BOT,17.5GM/BOT,N/A,N/A,N/A,N/A;N/A,N/A,N/A,210GM,0.74GM,2.86GM,5.6GM **Federal Register determination that product was not discontinued or withdrawn for safety or effectiveness reasons**
Dosage Form/Route: SOLUTION;ORAL
Application: N203595 | Product #001
Applicant: BRAINTREE LABORATORIES INC
Approved: Jan 18, 2013 | RLD: Yes | RS: No | Type: DISCN